FAERS Safety Report 4885149-1 (Version None)
Quarter: 2005Q4

REPORT INFORMATION
  Report Type: 
  Country: None (occurrence: None)
  Receive Date: 20051201
  Receipt Date: 20050915
  Transmission Date: 20060501
  Serious: No
  Sender: FDA-Public Use
  Company Number: 2005PV002155

PATIENT
  Age: 57 Year
  Sex: Female

DRUGS (5)
  1. BYETTA [Suspect]
     Indication: DIABETES MELLITUS NON-INSULIN-DEPENDENT
     Dosage: 5 MCG; BID; SC
     Route: 058
     Dates: start: 20050902
  2. CYMBALTA [Concomitant]
  3. METFORMIN [Concomitant]
  4. TENORMIN [Concomitant]
  5. HUMALOG PEN [Concomitant]

REACTIONS (6)
  - ABDOMINAL DISTENSION [None]
  - COLD SWEAT [None]
  - DECREASED APPETITE [None]
  - DYSGEUSIA [None]
  - NAUSEA [None]
  - VOMITING [None]
